FAERS Safety Report 23068621 (Version 1)
Quarter: 2023Q4

REPORT INFORMATION
  Report Type: Spontaneous
  Country: US (occurrence: None)
  Receive Date: 20231014
  Receipt Date: 20231014
  Transmission Date: 20240109
  Serious: Yes (Death, Hospitalization, Disabling, Other)
  Sender: FDA-Public Use
  Company Number: None

PATIENT
  Age: 93 Year
  Sex: Female
  Weight: 58.5 kg

DRUGS (4)
  1. DEPAKOTE [Suspect]
     Active Substance: DIVALPROEX SODIUM
     Indication: Delirium
     Dates: start: 20220921, end: 20221013
  2. DEPAKOTE [Suspect]
     Active Substance: DIVALPROEX SODIUM
     Indication: Agitation
  3. HALDOL [Suspect]
     Active Substance: HALOPERIDOL
  4. MEDICATION FOR THYROID [Concomitant]

REACTIONS (4)
  - Off label use [None]
  - Coma [None]
  - Delirium [None]
  - Agitation [None]

NARRATIVE: CASE EVENT DATE: 20221014
